FAERS Safety Report 5213099-X (Version None)
Quarter: 2007Q1

REPORT INFORMATION
  Report Type: 
  Country: None (occurrence: None)
  Receive Date: 20070118
  Receipt Date: 20070118
  Transmission Date: 20070707
  Serious: No
  Sender: FDA-Public Use
  Company Number: None

PATIENT
  Age: 80 Year
  Sex: Female
  Weight: 60.3284 kg

DRUGS (2)
  1. MELOXICAM [Suspect]
     Indication: OSTEOARTHRITIS
     Dosage: 10MG  DAILY  PO
     Route: 048
     Dates: start: 20060816, end: 20061220
  2. GLUCOSAMINE-CHONDRONTIN [Concomitant]

REACTIONS (4)
  - ARTHRALGIA [None]
  - CONDITION AGGRAVATED [None]
  - DRUG INEFFECTIVE [None]
  - THERAPEUTIC RESPONSE UNEXPECTED WITH DRUG SUBSTITUTION [None]
